FAERS Safety Report 16053300 (Version 4)
Quarter: 2020Q1

REPORT INFORMATION
  Report Type: Spontaneous
  Country: US (occurrence: US)
  Receive Date: 20190308
  Receipt Date: 20200108
  Transmission Date: 20200409
  Serious: No
  Sender: FDA-Public Use
  Company Number: US-B.I. PHARMACEUTICALS,INC./RIDGEFIELD-2019-BI-008975

PATIENT
  Age: 71 Year
  Sex: Male

DRUGS (1)
  1. SPIRIVA [Suspect]
     Active Substance: TIOTROPIUM BROMIDE MONOHYDRATE
     Indication: CHRONIC OBSTRUCTIVE PULMONARY DISEASE
     Dosage: FORM STRENGTH: 18 MCG ACTION(S)TAKEN WITH PRODUCT: DOSE NOT CHANGED, 2 PUFFS FROM 1 CAPSULE DAILY
     Route: 055
     Dates: start: 2015

REACTIONS (5)
  - Overdose [Recovered/Resolved]
  - Product quality issue [Unknown]
  - Visual impairment [Not Recovered/Not Resolved]
  - Overdose [Recovered/Resolved]
  - Product quality issue [Unknown]

NARRATIVE: CASE EVENT DATE: 20190227
